FAERS Safety Report 18053500 (Version 1)
Quarter: 2020Q3

REPORT INFORMATION
  Report Type: Spontaneous
  Country: US (occurrence: US)
  Receive Date: 20200721
  Receipt Date: 20200721
  Transmission Date: 20201103
  Serious: No
  Sender: FDA-Public Use
  Company Number: None

PATIENT
  Age: 38 Year
  Sex: Male
  Weight: 94.5 kg

DRUGS (1)
  1. LEMON FLAVORED HAND SANITIZER [Suspect]
     Active Substance: ALCOHOL
     Indication: ANTIVIRAL PROPHYLAXIS
     Dates: start: 20200716, end: 20200718

REACTIONS (1)
  - Skin burning sensation [None]

NARRATIVE: CASE EVENT DATE: 20200718
